FAERS Safety Report 6827514-9 (Version None)
Quarter: 2010Q3

REPORT INFORMATION
  Report Type: 
  Country: None (occurrence: None)
  Receive Date: 20100709
  Receipt Date: 20070404
  Transmission Date: 20110219
  Serious: No
  Sender: FDA-Public Use
  Company Number: US-PFIZER INC-2007005341

PATIENT
  Sex: Male
  Weight: 99.79 kg

DRUGS (6)
  1. CHANTIX [Suspect]
     Indication: SMOKING CESSATION THERAPY
     Dates: start: 20061229
  2. LUNESTA [Suspect]
     Indication: SLEEP DISORDER
     Dates: start: 20070112, end: 20070114
  3. MULTI-VITAMINS [Concomitant]
  4. FISH OIL [Concomitant]
  5. ACETYLSALICYLIC ACID [Concomitant]
  6. PSYLLIUM HYDROPHILIC MUCILLOID [Concomitant]

REACTIONS (5)
  - ABNORMAL DREAMS [None]
  - FATIGUE [None]
  - INSOMNIA [None]
  - POOR QUALITY SLEEP [None]
  - SLUGGISHNESS [None]
